FAERS Safety Report 7815803-0 (Version None)
Quarter: 2011Q4

REPORT INFORMATION
  Report Type: 
  Country: None (occurrence: None)
  Receive Date: 20111014
  Receipt Date: 20111004
  Transmission Date: 20120403
  Serious: Yes (Hospitalization)
  Sender: FDA-Public Use
  Company Number: NL-MEDIMMUNE-MEDI-0013697

PATIENT
  Sex: Male
  Weight: 7.64 kg

DRUGS (11)
  1. DOMPERIDONE MALEATE [Concomitant]
  2. VERNEVELEN VENTOLIN [Concomitant]
  3. VERNEVELEN IPRAXA [Concomitant]
  4. POTASSIUM [Concomitant]
  5. SYNAGIS [Suspect]
     Route: 030
     Dates: start: 20111004
  6. URSOFLOXCAPS [Concomitant]
  7. SYNAGIS [Suspect]
     Indication: BRONCHOPULMONARY DYSPLASIA
     Route: 030
     Dates: start: 20110906, end: 20110906
  8. AMOXICILLIN [Concomitant]
  9. ESOMEPRAZOLE SODIUM [Concomitant]
  10. ALFACALCIDOL [Concomitant]
  11. AEROSOL QUVAR [Concomitant]

REACTIONS (1)
  - RESPIRATORY TRACT INFECTION [None]
